FAERS Safety Report 21534646 (Version 1)
Quarter: 2022Q4

REPORT INFORMATION
  Report Type: Spontaneous
  Country: US (occurrence: US)
  Receive Date: 20221101
  Receipt Date: 20221101
  Transmission Date: 20230113
  Serious: No
  Sender: FDA-Public Use
  Company Number: US-MIGRATION_PFIZER-2022BHV001678

PATIENT
  Age: 39 Year
  Sex: Female
  Weight: 47.670 kg

DRUGS (4)
  1. NURTEC ODT [Suspect]
     Active Substance: RIMEGEPANT SULFATE
     Indication: Migraine prophylaxis
     Dosage: WHITE/CIRCLE
     Route: 048
  2. NURTEC ODT [Suspect]
     Active Substance: RIMEGEPANT SULFATE
     Indication: Migraine
     Dosage: SAMPLE PACK FROM DOCTOR^S OFFICE FOR ACUTE MIGRAINE TREATMENT
     Route: 065
  3. LOW ESTROGEN BIRTH CONTROL [Concomitant]
     Indication: Contraception
     Dosage: LOW ESTROGEN BIRTH CONTROL
     Route: 065
  4. SPIRONOLACTONE [Concomitant]
     Active Substance: SPIRONOLACTONE
     Indication: Product used for unknown indication
     Route: 065

REACTIONS (9)
  - Rash pruritic [Not Recovered/Not Resolved]
  - Lip swelling [Not Recovered/Not Resolved]
  - Swollen tongue [Not Recovered/Not Resolved]
  - Pharyngeal swelling [Not Recovered/Not Resolved]
  - COVID-19 [Unknown]
  - Erythema [Unknown]
  - Gastrointestinal disorder [Unknown]
  - Hypersensitivity [Not Recovered/Not Resolved]
  - Nausea [Unknown]

NARRATIVE: CASE EVENT DATE: 20211201
